FAERS Safety Report 20796297 (Version 1)
Quarter: 2022Q2

REPORT INFORMATION
  Report Type: Spontaneous
  Country: US (occurrence: US)
  Receive Date: 20220506
  Receipt Date: 20220506
  Transmission Date: 20220720
  Serious: No
  Sender: FDA-Public Use
  Company Number: US-BRISTOL-MYERS SQUIBB COMPANY-2022-024048

PATIENT
  Age: 64 Year
  Sex: Male

DRUGS (1)
  1. POMALIDOMIDE [Suspect]
     Active Substance: POMALIDOMIDE
     Indication: Product used for unknown indication
     Dosage: DOSE: 3 MILLIGRAM, FREQ: DAILY FOR 21 DAYS
     Route: 048
     Dates: start: 20170906

REACTIONS (1)
  - Influenza [Not Recovered/Not Resolved]
